FAERS Safety Report 12167670 (Version 3)
Quarter: 2016Q4

REPORT INFORMATION
  Report Type: Report from Study
  Country: EC (occurrence: EC)
  Receive Date: 20160310
  Receipt Date: 20161208
  Transmission Date: 20170207
  Serious: Yes (Hospitalization)
  Sender: FDA-Public Use
  Company Number: PHHY2016EC032618

PATIENT
  Age: 24 Year
  Sex: Female

DRUGS (1)
  1. TASIGNA [Suspect]
     Active Substance: NILOTINIB
     Indication: CHRONIC MYELOID LEUKAEMIA
     Dosage: 400 MG, BID
     Route: 048
     Dates: start: 20150929

REACTIONS (5)
  - Dizziness [Unknown]
  - Nausea [Unknown]
  - Syncope [Not Recovered/Not Resolved]
  - Brain neoplasm [Unknown]
  - Headache [Unknown]

NARRATIVE: CASE EVENT DATE: 20160229
